FAERS Safety Report 4884856-4 (Version None)
Quarter: 2006Q1

REPORT INFORMATION
  Report Type: 
  Country: None (occurrence: None)
  Receive Date: 20060119
  Receipt Date: 20050831
  Transmission Date: 20060701
  Serious: Yes (Death, Hospitalization)
  Sender: FDA-Public Use
  Company Number: GB-GLAXOSMITHKLINE-B0392300A

PATIENT
  Age: 63 Year
  Sex: Male
  Weight: 123 kg

DRUGS (6)
  1. AVANDIA [Suspect]
     Dosage: 4MG PER DAY
     Route: 048
     Dates: start: 20010322, end: 20020219
  2. GLICLAZIDE [Concomitant]
     Dosage: 80MG PER DAY
  3. LANSOPRAZOLE [Concomitant]
     Dosage: 30MG PER DAY
  4. PROPRANOLOL [Concomitant]
     Dosage: 80MG TWICE PER DAY
  5. THIAMINE [Concomitant]
     Dosage: 200MG PER DAY
  6. SPIRONOLACTONE [Concomitant]
     Dosage: 200MG PER DAY

REACTIONS (3)
  - ASCITES [None]
  - HEPATIC FAILURE [None]
  - MALAISE [None]
